FAERS Safety Report 6102396-1 (Version None)
Quarter: 2009Q1

REPORT INFORMATION
  Report Type: 
  Country: None (occurrence: None)
  Receive Date: 20090304
  Receipt Date: 20090303
  Transmission Date: 20090719
  Serious: Yes (Hospitalization, Other)
  Sender: FDA-Public Use
  Company Number: GB-WYE-G03076609

PATIENT
  Sex: Male

DRUGS (4)
  1. TEMSIROLIMUS [Suspect]
     Route: 042
     Dates: start: 20071105, end: 20090129
  2. MORPHINE SULFATE [Concomitant]
     Dosage: UNKNOWN
  3. TRANEXAMIC ACID [Concomitant]
     Dosage: UNKNOWN
  4. DEXAMETHASONE [Concomitant]
     Dosage: UNKNOWN

REACTIONS (1)
  - HAEMOPTYSIS [None]
